FAERS Safety Report 5152290-8 (Version None)
Quarter: 2006Q4

REPORT INFORMATION
  Report Type: 
  Country: None (occurrence: None)
  Receive Date: 20061116
  Receipt Date: 20060711
  Transmission Date: 20070319
  Serious: Yes (Hospitalization)
  Sender: FDA-Public Use
  Company Number: JP-ABBOTT-06P-087-0337982-00

PATIENT
  Sex: Female

DRUGS (9)
  1. KLARICID [Suspect]
     Indication: INFECTION
     Route: 048
     Dates: start: 20060621, end: 20060622
  2. KLARICID [Suspect]
     Indication: BRONCHIECTASIS
  3. FUDOSTEINE [Concomitant]
     Indication: DRUG USE FOR UNKNOWN INDICATION
     Route: 048
     Dates: start: 20060621, end: 20060622
  4. HERBAL MEDICINE [Concomitant]
     Indication: DRUG USE FOR UNKNOWN INDICATION
     Route: 048
     Dates: start: 20060621, end: 20060622
  5. TEPRENONE [Concomitant]
     Indication: DRUG USE FOR UNKNOWN INDICATION
     Route: 048
     Dates: start: 20060621, end: 20060622
  6. LEVOFLOXACIN [Concomitant]
     Indication: INFECTION
     Route: 048
     Dates: start: 20060522
  7. LEVOFLOXACIN [Concomitant]
     Indication: BRONCHIECTASIS
     Route: 048
     Dates: start: 20060622
  8. MOXIFLOXACIN HYDROCHLORIDE [Concomitant]
     Indication: PYREXIA
     Route: 048
     Dates: start: 20060614
  9. ISEPAMICIN SULFATE [Concomitant]
     Indication: PYREXIA
     Dates: start: 20060614

REACTIONS (3)
  - ANOREXIA [None]
  - BACTERIAL INFECTION [None]
  - PYREXIA [None]
